FAERS Safety Report 8305108-6 (Version None)
Quarter: 2012Q2

REPORT INFORMATION
  Report Type: 
  Country: None (occurrence: None)
  Receive Date: 20120423
  Receipt Date: 20120412
  Transmission Date: 20120825
  Serious: Yes (Hospitalization)
  Sender: FDA-Public Use
  Company Number: FR-ASTRAZENECA-2012SE21115

PATIENT
  Age: 20 Year
  Sex: Female

DRUGS (10)
  1. MESALAMINE [Suspect]
     Indication: COLITIS ULCERATIVE
     Route: 048
     Dates: start: 20111001, end: 20120224
  2. PREDNISONE TAB [Concomitant]
     Dates: start: 20111001
  3. ACETAMINOPHEN [Concomitant]
  4. ANTIEMETIC [Concomitant]
  5. PREDNISONE TAB [Concomitant]
  6. NEXIUM [Suspect]
     Route: 048
     Dates: start: 20120201, end: 20120201
  7. PREDNISONE TAB [Concomitant]
     Dates: start: 20120101
  8. LEVONORGESTREL [Concomitant]
     Dates: start: 20100101
  9. POTASSIUM CHLORIDE [Suspect]
     Route: 048
     Dates: start: 20110901, end: 20120201
  10. OROCAL D3 [Suspect]
     Route: 048
     Dates: start: 20110901, end: 20120201

REACTIONS (2)
  - CHEST PAIN [None]
  - PANCREATITIS ACUTE [None]
